FAERS Safety Report 5678557-2 (Version None)
Quarter: 2008Q1

REPORT INFORMATION
  Report Type: 
  Country: None (occurrence: None)
  Receive Date: 20080325
  Receipt Date: 20080317
  Transmission Date: 20080703
  Serious: Yes (Other)
  Sender: FDA-Public Use
  Company Number: PT-JNJFOC-20080301320

PATIENT
  Age: 37 Year
  Sex: Female

DRUGS (4)
  1. INFLIXIMAB [Suspect]
     Route: 042
  2. INFLIXIMAB [Suspect]
     Indication: CROHN'S DISEASE
     Route: 042
  3. HYDROCORTISONE [Concomitant]
     Indication: PREMEDICATION
  4. AZATHIOPRINE [Concomitant]
     Indication: DRUG USE FOR UNKNOWN INDICATION

REACTIONS (6)
  - ANXIETY [None]
  - FACE OEDEMA [None]
  - HYPERSENSITIVITY [None]
  - HYPERTENSION [None]
  - INFUSION RELATED REACTION [None]
  - TACHYCARDIA [None]
